FAERS Safety Report 6952160-6 (Version None)
Quarter: 2010Q3

REPORT INFORMATION
  Report Type: 
  Country: None (occurrence: None)
  Receive Date: 20100829
  Receipt Date: 20100513
  Transmission Date: 20110219
  Serious: No
  Sender: FDA-Public Use
  Company Number: US-ABBOTT-08P-163-0454966-00

PATIENT
  Sex: Male
  Weight: 81.72 kg

DRUGS (3)
  1. NIASPAN [Suspect]
     Indication: BLOOD CHOLESTEROL INCREASED
     Route: 048
     Dates: start: 20060101, end: 20060101
  2. NIASPAN [Suspect]
     Route: 048
     Dates: start: 20080603
  3. ASPIRIN [Concomitant]
     Indication: PROPHYLAXIS
     Route: 048
     Dates: start: 20080603

REACTIONS (2)
  - FLUSHING [None]
  - PRURITUS [None]
